FAERS Safety Report 9209581 (Version 1)
Quarter: 2013Q2

REPORT INFORMATION
  Report Type: Spontaneous
  Country: US (occurrence: US)
  Receive Date: 20130404
  Receipt Date: 20130404
  Transmission Date: 20140414
  Serious: Yes (Other)
  Sender: FDA-Public Use
  Company Number: US-BRISTOL-MYERS SQUIBB COMPANY-18719534

PATIENT
  Age: 66 Year
  Sex: Female

DRUGS (11)
  1. ABILIFY [Suspect]
     Indication: DEPRESSION
  2. GLIPIZIDE [Concomitant]
  3. METFORMIN [Concomitant]
  4. LISINOPRIL [Concomitant]
  5. ATENOLOL [Concomitant]
  6. PRAVASTATIN SODIUM [Concomitant]
  7. MIRTAZAPINE [Concomitant]
  8. LEXAPRO [Concomitant]
  9. IBUPROFEN [Concomitant]
  10. VITAMIN B COMPLEX [Concomitant]
  11. CALCIUM + VITAMIN D [Concomitant]

REACTIONS (2)
  - Depression [Unknown]
  - Dementia [Unknown]
